FAERS Safety Report 26139579 (Version 1)
Quarter: 2025Q4

REPORT INFORMATION
  Report Type: Spontaneous
  Country: GB (occurrence: GB)
  Receive Date: 20251210
  Receipt Date: 20251210
  Transmission Date: 20260117
  Serious: Yes (Disabling, Other)
  Sender: TEVA
  Company Number: None

PATIENT
  Age: 67 Year
  Sex: Female
  Weight: 113 kg

DRUGS (8)
  1. ATORVASTATIN [Suspect]
     Active Substance: ATORVASTATIN
     Indication: Product used for unknown indication
     Route: 065
     Dates: start: 20230102, end: 20250312
  2. APIXABAN [Concomitant]
     Active Substance: APIXABAN
     Indication: Blood test
     Dosage: FOR ANNUAL BLOOD TESTS AND WEIGHT. FOR ATRIAL FIBRILLATION.
     Route: 065
     Dates: start: 20250306
  3. PREDNISOLONE [Concomitant]
     Active Substance: PREDNISOLONE
     Indication: Adverse drug reaction
     Dosage: 4 ALTERNATE DAYS (IN ADDITION TO 5MG TABLETS - TOTAL DOSE 9MG ALTERNATE DAYS)
     Route: 065
     Dates: start: 20250522
  4. PREDNISOLONE [Concomitant]
     Active Substance: PREDNISOLONE
     Indication: Adverse drug reaction
     Dosage: AS PER NEUROL ADVICE TITRATING UP TO MAX 50MG ALTERNATE DAYS
     Route: 065
     Dates: start: 20250305, end: 20250424
  5. PREDNISOLONE [Concomitant]
     Active Substance: PREDNISOLONE
     Indication: Adverse drug reaction
     Dosage: ONE ALTERNATE DAYS
     Route: 065
  6. ENSTILAR [Concomitant]
     Active Substance: BETAMETHASONE DIPROPIONATE\CALCIPOTRIENE HYDRATE
     Indication: Adverse drug reaction
     Dosage: TO THE AFFECTED AREAS. READ THE INFORMATION LEAFLET,  50MICROGRAMS/G / 0.5 MG/G CUTANEOUS FOAM (L...
     Route: 065
     Dates: start: 20250312, end: 20250424
  7. Trimovate cream [Concomitant]
     Indication: Product used for unknown indication
     Dosage: APPLY THIN LAYER TWICE DAILY TO AFFECTED AREA FOR ONE WEEK. KEEP AREA AS DRY AS POSSIBLE,(ENNOGEN...
     Route: 065
     Dates: start: 20250402, end: 20250515
  8. Sebco [Concomitant]
     Indication: Product used for unknown indication
     Dosage: APPLY TO SKIN. LEAVE ON FOR ONE HOUR BEFORE WASHING OFF. APPLY DAILY FOR FIRST 3 - 7 DAYS, THEN C...
     Route: 065
     Dates: start: 20250402, end: 20250515

REACTIONS (3)
  - Myasthenia gravis [Recovering/Resolving]
  - Mastication disorder [Recovering/Resolving]
  - Diplopia [Recovering/Resolving]

NARRATIVE: CASE EVENT DATE: 20230703
